FAERS Safety Report 5742741-X (Version None)
Quarter: 2008Q2

REPORT INFORMATION
  Report Type: 
  Country: None (occurrence: None)
  Receive Date: 20080515
  Receipt Date: 20080515
  Transmission Date: 20081010
  Serious: Yes (Other)
  Sender: FDA-Public Use
  Company Number: None

PATIENT
  Sex: Female
  Weight: 98.8842 kg

DRUGS (3)
  1. LEVAQUIN [Suspect]
     Indication: SKIN IRRITATION
     Dosage: 750 MG PO QD X 5D (ONLY TOOK 3 DOSES)
     Route: 048
     Dates: start: 20080415
  2. LEVAQUIN [Suspect]
     Indication: SKIN IRRITATION
     Dosage: 750 MG PO QD X 5D (ONLY TOOK 3 DOSES)
     Route: 048
     Dates: start: 20080416
  3. LEVAQUIN [Suspect]
     Indication: SKIN IRRITATION
     Dosage: 750 MG PO QD X 5D (ONLY TOOK 3 DOSES)
     Route: 048
     Dates: start: 20080417

REACTIONS (7)
  - ARTHRALGIA [None]
  - JOINT RANGE OF MOTION DECREASED [None]
  - LIP ULCERATION [None]
  - OEDEMA PERIPHERAL [None]
  - PAIN IN EXTREMITY [None]
  - TENDON PAIN [None]
  - URTICARIA [None]
